FAERS Safety Report 4349712-9 (Version None)
Quarter: 2004Q2

REPORT INFORMATION
  Report Type: 
  Country: None (occurrence: None)
  Receive Date: 20040426
  Receipt Date: 20030714
  Transmission Date: 20050107
  Serious: Yes (Disabling, Other)
  Sender: FDA-Public Use
  Company Number: 2003027553

PATIENT
  Age: 28 Month
  Sex: Male
  Weight: 14.5151 kg

DRUGS (1)
  1. ZITHROMAX [Suspect]
     Indication: MIDDLE EAR EFFUSION
     Dosage: 100 MG (DAILY), ORAL
     Route: 048
     Dates: start: 20030616, end: 20030601

REACTIONS (1)
  - DEAFNESS [None]
